FAERS Safety Report 6021465-8 (Version None)
Quarter: 2008Q4

REPORT INFORMATION
  Report Type: 
  Country: None (occurrence: None)
  Receive Date: 20081229
  Receipt Date: 20081218
  Transmission Date: 20090506
  Serious: No
  Sender: FDA-Public Use
  Company Number: US-JNJFOC-20081205823

PATIENT
  Sex: Male
  Weight: 93.44 kg

DRUGS (8)
  1. DURAGESIC-100 [Suspect]
     Indication: ABDOMINAL PAIN UPPER
     Route: 062
  2. COUMADIN [Concomitant]
     Route: 048
  3. COUMADIN [Concomitant]
     Indication: ANTICOAGULANT THERAPY
     Route: 048
  4. PANCREASE [Concomitant]
     Indication: PANCREATITIS
     Route: 048
  5. CELEXA [Concomitant]
     Indication: DEPRESSION
     Route: 048
  6. NEURONTIN [Concomitant]
     Indication: PANCREATITIS
     Dosage: 600 MG 2 TABLETS 3 TIMES A DAY
     Route: 048
  7. SEROQUEL [Concomitant]
     Indication: SLEEP DISORDER
     Dosage: 1 AT BED TIME
     Route: 048
  8. ADVAIR DISKUS 250/50 [Concomitant]
     Indication: ASTHMA
     Dosage: DOSE= 250:50 (PUFF TWICE A DAY)
     Route: 055

REACTIONS (2)
  - INADEQUATE ANALGESIA [None]
  - WRONG TECHNIQUE IN DRUG USAGE PROCESS [None]
